FAERS Safety Report 26097208 (Version 1)
Quarter: 2025Q4

REPORT INFORMATION
  Report Type: Other
  Country: GB (occurrence: GB)
  Receive Date: 20251127
  Receipt Date: 20251127
  Transmission Date: 20260118
  Serious: Yes (Hospitalization, Other)
  Sender: GLENMARK
  Company Number: None

PATIENT
  Age: 80 Year
  Sex: Male
  Weight: 89 kg

DRUGS (1)
  1. SOLIFENACIN SUCCINATE [Suspect]
     Active Substance: SOLIFENACIN SUCCINATE
     Indication: Nocturia
     Dosage: 5 MILLIGRAM, QD (5MG ONCE A DAY)
     Route: 065
     Dates: start: 20250717, end: 20250919

REACTIONS (5)
  - Tunnel vision [Recovering/Resolving]
  - Medication error [Unknown]
  - Hallucination, visual [Unknown]
  - Confusional state [Unknown]
  - Loss of personal independence in daily activities [Unknown]

NARRATIVE: CASE EVENT DATE: 20250917
